FAERS Safety Report 8373157-8 (Version None)
Quarter: 2012Q2

REPORT INFORMATION
  Report Type: 
  Country: None (occurrence: None)
  Receive Date: 20120521
  Receipt Date: 20120516
  Transmission Date: 20120825
  Serious: Yes (Death, Other)
  Sender: FDA-Public Use
  Company Number: FR-ASTRAZENECA-2012SE31520

PATIENT
  Age: 59 Year
  Sex: Female
  Weight: 59 kg

DRUGS (2)
  1. NEXIUM [Suspect]
     Indication: GASTRITIS PROPHYLAXIS
     Route: 048
     Dates: start: 20120325, end: 20120329
  2. CRIZOTINIB [Suspect]
     Indication: BRONCHIAL CARCINOMA
     Route: 048
     Dates: start: 20120112, end: 20120329

REACTIONS (3)
  - THROMBOCYTOPENIA [None]
  - BRONCHIAL CARCINOMA [None]
  - DISEASE PROGRESSION [None]
